FAERS Safety Report 8132285-2 (Version None)
Quarter: 2012Q1

REPORT INFORMATION
  Report Type: 
  Country: None (occurrence: None)
  Receive Date: 20120103
  Receipt Date: 20110916
  Transmission Date: 20120608
  Serious: No
  Sender: FDA-Public Use
  Company Number: AE-2011-001590

PATIENT
  Age: 52 Year
  Sex: Female
  Weight: 65.7716 kg

DRUGS (6)
  1. PEGASYS [Concomitant]
  2. RIBAVIRIN [Concomitant]
  3. HYDROCHLOROTHIAZIDE [Concomitant]
  4. BENICAR [Concomitant]
  5. INCIVEK [Suspect]
     Dosage: 2250 MG (750 MG,1 IN 8 HR),ORAL
     Route: 049
     Dates: start: 20110909
  6. POTASSIUM CHLORIDE [Concomitant]

REACTIONS (2)
  - DIZZINESS [None]
  - BLOOD PRESSURE DECREASED [None]
